FAERS Safety Report 5386956-1 (Version None)
Quarter: 2007Q3

REPORT INFORMATION
  Report Type: 
  Country: None (occurrence: None)
  Receive Date: 20070713
  Receipt Date: 20070702
  Transmission Date: 20080115
  Serious: Yes (Death)
  Sender: FDA-Public Use
  Company Number: US-PFIZER INC-2007054968

PATIENT
  Sex: Male
  Weight: 93 kg

DRUGS (10)
  1. CELEBREX [Suspect]
     Indication: RHEUMATOID ARTHRITIS
     Dates: start: 20030411, end: 20031119
  2. CELEBREX [Suspect]
     Dates: start: 20040930, end: 20041227
  3. VIOXX [Suspect]
     Indication: RHEUMATOID ARTHRITIS
     Dates: start: 20030117, end: 20030411
  4. VIOXX [Suspect]
     Dates: start: 20031119, end: 20040930
  5. PREVACID [Concomitant]
  6. FOLIC ACID [Concomitant]
  7. LIPITOR [Concomitant]
  8. METHOTREXATE [Concomitant]
  9. PREDNISOLONE [Concomitant]
  10. REMICADE [Concomitant]

REACTIONS (1)
  - MYOCARDIAL INFARCTION [None]
